FAERS Safety Report 10415142 (Version 1)
Quarter: 2014Q2

REPORT INFORMATION
  Report Type: Spontaneous
  Country: US (occurrence: None)
  Receive Date: 20140604
  Receipt Date: 20140604
  Transmission Date: 20141212
  Serious: No
  Sender: FDA-Public Use
  Company Number: 163-POMAL-14023193

PATIENT
  Age: 63 Year
  Sex: Male

DRUGS (3)
  1. POMALYST [Suspect]
     Indication: PLASMA CELL MYELOMA
     Dosage: 21 IN 21D
     Route: 048
     Dates: start: 20140128
  2. ROBAXIN (METHOCARBAMOL) [Concomitant]
  3. AZYTHROMYCIN (AZITHROMYCIN) [Concomitant]

REACTIONS (1)
  - Bronchitis [None]
